FAERS Safety Report 11687540 (Version 1)
Quarter: 2015Q4

REPORT INFORMATION
  Report Type: Spontaneous
  Country: JP (occurrence: JP)
  Receive Date: 20151030
  Receipt Date: 20151030
  Transmission Date: 20160304
  Serious: Yes (Other)
  Sender: FDA-Public Use
  Company Number: JP-BAYER-2015-450988

PATIENT
  Age: 36 Year
  Sex: Female

DRUGS (1)
  1. NIFEDIPINE. [Suspect]
     Active Substance: NIFEDIPINE
     Indication: HYPERTENSION
     Dosage: 40 MG, QD

REACTIONS (10)
  - Ascites [Recovered/Resolved]
  - Face oedema [Recovered/Resolved]
  - Pleural effusion [Recovered/Resolved]
  - Drug ineffective [None]
  - Premature delivery [None]
  - Maternal exposure during pregnancy [None]
  - Hypotension [Recovered/Resolved]
  - Respiratory failure [Recovered/Resolved]
  - Oedema peripheral [Recovered/Resolved]
  - Protein urine present [Recovered/Resolved]
